FAERS Safety Report 9743144 (Version 1)
Quarter: 2013Q4

REPORT INFORMATION
  Report Type: Spontaneous
  Country: US (occurrence: US)
  Receive Date: 20131210
  Receipt Date: 20131210
  Transmission Date: 20140711
  Serious: No
  Sender: FDA-Public Use
  Company Number: US-GILEAD-2009-0024301

PATIENT
  Sex: Female
  Weight: 48.08 kg

DRUGS (16)
  1. LETAIRIS [Suspect]
     Indication: PULMONARY ARTERIAL HYPERTENSION
     Route: 048
  2. LETAIRIS [Suspect]
     Route: 048
     Dates: start: 20090218
  3. LASIX [Concomitant]
  4. METOPROLOL [Concomitant]
  5. CLONIDINE [Concomitant]
  6. COUMADIN [Concomitant]
  7. ARANESP [Concomitant]
  8. SPIRIVA [Concomitant]
  9. HYDREA [Concomitant]
  10. BENTYL [Concomitant]
  11. ZOLOFT [Concomitant]
  12. BENADRYL [Concomitant]
  13. PREVACID [Concomitant]
  14. POTASSIUM CHLORIDE [Concomitant]
  15. TRAVATAN [Concomitant]
  16. ALPHAGAN [Concomitant]

REACTIONS (1)
  - Oedema [Unknown]
